FAERS Safety Report 4354780-4 (Version None)
Quarter: 2004Q2

REPORT INFORMATION
  Report Type: 
  Country: None (occurrence: None)
  Receive Date: 20040507
  Receipt Date: 20011001
  Transmission Date: 20050107
  Serious: Yes (Death, Other)
  Sender: FDA-Public Use
  Company Number: US-MERCK-01102173

PATIENT
  Age: 72 Year
  Sex: Female
  Weight: 77 kg

DRUGS (8)
  1. HYDRODIURIL [Concomitant]
     Indication: HYPERTENSION
     Route: 065
     Dates: start: 19990108
  2. PREVACID [Concomitant]
     Indication: GASTROOESOPHAGEAL REFLUX DISEASE
     Route: 065
  3. CLARITIN [Concomitant]
     Route: 065
  4. VIOXX [Suspect]
     Indication: MUSCLE STRAIN
     Route: 048
     Dates: start: 20010919, end: 20010922
  5. VIOXX [Suspect]
     Route: 048
     Dates: start: 20010423, end: 20010401
  6. VIOXX [Suspect]
     Indication: ARTHRALGIA
     Route: 048
     Dates: start: 20010919, end: 20010922
  7. ATENOLOL [Concomitant]
     Indication: HYPERTENSION
     Route: 065
     Dates: start: 19990101
  8. VIOXX [Suspect]
     Route: 048
     Dates: start: 20010423, end: 20010401

REACTIONS (10)
  - CARDIO-RESPIRATORY ARREST [None]
  - COLD SWEAT [None]
  - HYPERSENSITIVITY [None]
  - MUSCLE STRAIN [None]
  - MYOCARDIAL INFARCTION [None]
  - NASOPHARYNGITIS [None]
  - NAUSEA [None]
  - PATELLOFEMORAL PAIN SYNDROME [None]
  - SUDDEN DEATH [None]
  - VOMITING [None]
